FAERS Safety Report 4352386-4 (Version None)
Quarter: 2004Q2

REPORT INFORMATION
  Report Type: 
  Country: None (occurrence: None)
  Receive Date: 20040428
  Receipt Date: 20040415
  Transmission Date: 20050107
  Serious: Yes (Death, Life-Threatening, Hospitalization, Other)
  Sender: FDA-Public Use
  Company Number: 2004023970

PATIENT
  Age: 35 Year
  Sex: Male

DRUGS (5)
  1. ZITHROMAX [Suspect]
     Indication: VIRAL INFECTION
     Dosage: ORAL
     Route: 048
     Dates: start: 20040301, end: 20040301
  2. ZITHROMAX [Suspect]
     Dosage: INTRAVENOUS
     Route: 042
     Dates: start: 20040301, end: 20040401
  3. IMMUNOGLOBULINS (IMMUNOGLOBULINS) [Concomitant]
  4. CORTISONE (CORTISONE) [Concomitant]
  5. ANTIBIOTICS (ANTIBIOTICS) [Concomitant]

REACTIONS (8)
  - ASTHENIA [None]
  - CYTOLYTIC HEPATITIS [None]
  - DYSPNOEA [None]
  - HAEMORRHAGE [None]
  - HEPATIC ATROPHY [None]
  - MONOPARESIS [None]
  - PROTHROMBIN TIME PROLONGED [None]
  - PURPURA [None]
